FAERS Safety Report 23243748 (Version 2)
Quarter: 2024Q4

REPORT INFORMATION
  Report Type: Spontaneous
  Country: US (occurrence: US)
  Receive Date: 20231130
  Receipt Date: 20241118
  Transmission Date: 20250114
  Serious: No
  Sender: CHIESI
  Company Number: US-CHIESI-2023CHF01221

PATIENT
  Age: 4 Year
  Sex: Male
  Weight: 16.4 kg

DRUGS (26)
  1. REVCOVI [Suspect]
     Active Substance: ELAPEGADEMASE-LVLR
     Indication: Combined immunodeficiency
     Dosage: 2.4MG/1.5ML, ONCE WEEKLY
     Route: 030
     Dates: start: 20230127, end: 20230127
  2. REVCOVI [Suspect]
     Active Substance: ELAPEGADEMASE-LVLR
     Indication: Combined immunodeficiency
     Dosage: 2.4 MG, Q WEEK
     Route: 030
     Dates: start: 20210803, end: 20210803
  3. REVCOVI [Suspect]
     Active Substance: ELAPEGADEMASE-LVLR
     Dosage: 2.4MG/1.5ML,ONCE WEEKLY
     Route: 030
     Dates: start: 20220630, end: 20220630
  4. REVCOVI [Suspect]
     Active Substance: ELAPEGADEMASE-LVLR
     Dosage: 2.4MG/1.5ML, ONCE WEEKLY
     Route: 030
     Dates: start: 20230317
  5. REVCOVI [Suspect]
     Active Substance: ELAPEGADEMASE-LVLR
     Dosage: 2.4MG/1.5ML, ONCE WEEKLY
     Route: 030
     Dates: start: 20230107, end: 20230107
  6. REVCOVI [Suspect]
     Active Substance: ELAPEGADEMASE-LVLR
     Dosage: 2.4MG/1.5ML, ONCE WEEKLY
     Route: 030
     Dates: start: 20230113, end: 20230113
  7. REVCOVI [Suspect]
     Active Substance: ELAPEGADEMASE-LVLR
     Dosage: 2.4MG/1.5ML, ONCE WEEKLY
     Route: 030
     Dates: start: 20230120, end: 20230120
  8. REVCOVI [Suspect]
     Active Substance: ELAPEGADEMASE-LVLR
     Dosage: 2.4MG/1.5ML, ONCE WEEKLY
     Route: 030
     Dates: start: 20230203, end: 20230203
  9. REVCOVI [Suspect]
     Active Substance: ELAPEGADEMASE-LVLR
     Dosage: 2.4MG/1.5ML, ONCE WEEKLY
     Route: 030
     Dates: start: 20221229, end: 20221229
  10. REVCOVI [Suspect]
     Active Substance: ELAPEGADEMASE-LVLR
     Dosage: 2.4 MG, ONCE WEEKLY
     Route: 030
     Dates: start: 202205
  11. REVCOVI [Suspect]
     Active Substance: ELAPEGADEMASE-LVLR
     Dosage: 0.2 MG/KG/WEEK
     Route: 065
     Dates: start: 20221013
  12. REVCOVI [Suspect]
     Active Substance: ELAPEGADEMASE-LVLR
     Dosage: 0.2 MG/KG/WEEK
     Route: 065
     Dates: start: 20220629
  13. REVCOVI [Suspect]
     Active Substance: ELAPEGADEMASE-LVLR
     Dosage: 0.2 MG/KG/WEEK
     Route: 065
     Dates: start: 20220428
  14. REVCOVI [Suspect]
     Active Substance: ELAPEGADEMASE-LVLR
     Dosage: 0.4 MG/KG/WK ONCE WEEKLY
     Route: 065
     Dates: start: 20211203
  15. REVCOVI [Suspect]
     Active Substance: ELAPEGADEMASE-LVLR
     Dosage: 0.2 MG/KG/WK
     Route: 065
     Dates: start: 20211005
  16. REVCOVI [Suspect]
     Active Substance: ELAPEGADEMASE-LVLR
     Dosage: UNK
     Route: 065
     Dates: start: 20210830
  17. REVCOVI [Suspect]
     Active Substance: ELAPEGADEMASE-LVLR
     Dosage: 0.4 MG/KG/WK DIVIDED IN TWO DOSES
     Route: 065
     Dates: start: 20210804
  18. REVCOVI [Suspect]
     Active Substance: ELAPEGADEMASE-LVLR
     Dosage: 2.4 MG TWICE WEEKLY
     Dates: end: 202205
  19. REVCOVI [Suspect]
     Active Substance: ELAPEGADEMASE-LVLR
     Dosage: 2.4 MG, ONCE WEEKLY
     Route: 065
     Dates: start: 20210804
  20. LIDOCAINE\PRILOCAINE [Concomitant]
     Active Substance: LIDOCAINE\PRILOCAINE
     Indication: Product used for unknown indication
     Dosage: 2.5%-2.5%, PO, 1 APPLICATION APPLIED ONCE TO DESIGNATED SITE 1 HOUR PRIOR TO INVASIVE PROCEDURE
     Route: 061
     Dates: start: 20220630
  21. ACETAMINOPHEN [Concomitant]
     Active Substance: ACETAMINOPHEN
     Indication: Pain
     Dosage: 192MG,2 TIMES A DAY AS NEEDED
     Route: 048
  22. ACETAMINOPHEN [Concomitant]
     Active Substance: ACETAMINOPHEN
     Indication: Pyrexia
  23. DIPHENDRAMINE EXPECTORANT [Concomitant]
     Indication: Product used for unknown indication
     Dosage: 12.5 MG PRIOR TO PRE MEDICATION INJECTION/REVCOVI INJECTION
     Route: 048
  24. CYPROHEPTADINE [Concomitant]
     Active Substance: CYPROHEPTADINE
     Indication: Product used for unknown indication
     Dosage: 2 MG/5 ML, BID
     Route: 048
  25. CETIRIZINE HYDROCHLORIDE [Concomitant]
     Active Substance: CETIRIZINE HYDROCHLORIDE
     Indication: Infusion related reaction
     Dosage: 12.5 MG/5 ML, LIQUID, PRN
     Route: 048
  26. VANICREAM [Concomitant]
     Active Substance: TITANIUM DIOXIDE\ZINC OXIDE
     Indication: Dry skin
     Dosage: 1 APPLICATION, TID, PRN
     Route: 061

REACTIONS (15)
  - Decreased appetite [Not Recovered/Not Resolved]
  - Weight decreased [Not Recovered/Not Resolved]
  - Anxiety [Recovered/Resolved]
  - Gastrointestinal disorder [Unknown]
  - Breath sounds abnormal [Unknown]
  - Dyspnoea [Unknown]
  - Eye discharge [Unknown]
  - Pyrexia [Unknown]
  - Chest pain [Recovered/Resolved]
  - Musculoskeletal chest pain [Recovered/Resolved]
  - Upper respiratory tract infection [Unknown]
  - Oropharyngeal pain [Unknown]
  - Cough [Unknown]
  - Nasal obstruction [Unknown]
  - Eating disorder [Not Recovered/Not Resolved]

NARRATIVE: CASE EVENT DATE: 20210804
